FAERS Safety Report 7194555-4 (Version None)
Quarter: 2010Q4

REPORT INFORMATION
  Report Type: 
  Country: None (occurrence: None)
  Receive Date: 20101223
  Receipt Date: 20100928
  Transmission Date: 20110411
  Serious: No
  Sender: FDA-Public Use
  Company Number: US-AMGEN-TCS441756

PATIENT

DRUGS (6)
  1. ENBREL [Suspect]
     Indication: PRODUCT USED FOR UNKNOWN INDICATION
     Dosage: 50 MG, QWK
     Route: 058
  2. HYDROXYCHLOROQUINE SULFATE [Concomitant]
     Dosage: 200 MG, UNK
  3. MOMETASONE FUROATE MONOHYDRATE [Concomitant]
     Dosage: 50 A?G, UNK
  4. FEXOFENADINE HCL [Concomitant]
     Dosage: 180 MG, UNK
  5. BUDESONIDE [Concomitant]
     Dosage: 180 A?G, UNK
  6. ESCITALOPRAM OXALATE [Concomitant]
     Dosage: 10 MG, UNK

REACTIONS (2)
  - RESPIRATORY TRACT INFECTION [None]
  - URINARY TRACT INFECTION [None]
